FAERS Safety Report 24308233 (Version 1)
Quarter: 2024Q3

REPORT INFORMATION
  Report Type: Report from Study
  Country: CN (occurrence: CN)
  Receive Date: 20240911
  Receipt Date: 20240911
  Transmission Date: 20241016
  Serious: Yes (Disabling)
  Sender: ROCHE
  Company Number: CN-002147023-NVSC2024CN179344

PATIENT
  Age: 77 Year
  Sex: Male

DRUGS (1)
  1. LUCENTIS [Suspect]
     Active Substance: RANIBIZUMAB
     Indication: Retinal vein occlusion
     Dosage: 1 DOSAGE FORM AS NEEDED
     Route: 047
     Dates: start: 20220909

REACTIONS (1)
  - Blindness [Not Recovered/Not Resolved]
